FAERS Safety Report 13011270 (Version 1)
Quarter: 2016Q4

REPORT INFORMATION
  Report Type: Spontaneous
  Country: FR (occurrence: FR)
  Receive Date: 20161209
  Receipt Date: 20161209
  Transmission Date: 20170207
  Serious: Yes (Other)
  Sender: FDA-Public Use
  Company Number: FR-ROCHE-1865229

PATIENT
  Sex: Female
  Weight: 54 kg

DRUGS (7)
  1. NOVATREX NOS [Suspect]
     Active Substance: AZITHROMYCIN OR METHOTREXATE SODIUM
     Indication: ATOPY
     Route: 048
     Dates: start: 201602
  2. XOLAIR [Suspect]
     Active Substance: OMALIZUMAB
     Indication: CHRONIC SPONTANEOUS URTICARIA
     Route: 065
  3. XOLAIR [Suspect]
     Active Substance: OMALIZUMAB
     Route: 058
  4. NOVATREX NOS [Suspect]
     Active Substance: AZITHROMYCIN OR METHOTREXATE SODIUM
     Indication: CHRONIC SPONTANEOUS URTICARIA
  5. XOLAIR [Suspect]
     Active Substance: OMALIZUMAB
     Route: 058
     Dates: start: 20160610
  6. BILASTINE [Concomitant]
     Active Substance: BILASTINE
     Indication: PRODUCT USED FOR UNKNOWN INDICATION
     Route: 048
  7. XOLAIR [Suspect]
     Active Substance: OMALIZUMAB
     Indication: ATOPY
     Route: 065

REACTIONS (6)
  - Urticaria [Unknown]
  - Arthralgia [Recovered/Resolved with Sequelae]
  - Tendon pain [Unknown]
  - Inappropriate schedule of drug administration [Unknown]
  - Tendon disorder [Recovered/Resolved with Sequelae]
  - Product use issue [Unknown]
